FAERS Safety Report 21877070 (Version 1)
Quarter: 2023Q1

REPORT INFORMATION
  Report Type: Spontaneous
  Country: CA (occurrence: CA)
  Receive Date: 20230118
  Receipt Date: 20230118
  Transmission Date: 20230418
  Serious: Yes (Other)
  Sender: FDA-Public Use
  Company Number: CA-002147023-NVSC2023CA008393

PATIENT
  Sex: Male

DRUGS (15)
  1. DILTIAZEM HYDROCHLORIDE [Suspect]
     Active Substance: DILTIAZEM HYDROCHLORIDE
     Indication: Hereditary alpha tryptasaemia
     Dosage: UNK
     Route: 065
  2. DILTIAZEM HYDROCHLORIDE [Suspect]
     Active Substance: DILTIAZEM HYDROCHLORIDE
     Indication: Prinzmetal angina
  3. AMLODIPINE BESYLATE [Suspect]
     Active Substance: AMLODIPINE BESYLATE
     Indication: Hereditary alpha tryptasaemia
     Dosage: UNK
     Route: 065
  4. AMLODIPINE BESYLATE [Suspect]
     Active Substance: AMLODIPINE BESYLATE
     Indication: Prinzmetal angina
  5. APIXABAN [Suspect]
     Active Substance: APIXABAN
     Indication: Prinzmetal angina
     Dosage: UNK
     Route: 065
  6. APIXABAN [Suspect]
     Active Substance: APIXABAN
     Indication: Hereditary alpha tryptasaemia
  7. MOMETASONE [Suspect]
     Active Substance: MOMETASONE
     Indication: Prinzmetal angina
     Dosage: UNK
     Route: 065
  8. MOMETASONE [Suspect]
     Active Substance: MOMETASONE
     Indication: Hereditary alpha tryptasaemia
  9. ISOSORBIDE MONONITRATE [Suspect]
     Active Substance: ISOSORBIDE MONONITRATE
     Indication: Prinzmetal angina
     Dosage: UNK
     Route: 065
  10. ISOSORBIDE MONONITRATE [Suspect]
     Active Substance: ISOSORBIDE MONONITRATE
     Indication: Prinzmetal angina
  11. ISOSORBIDE MONONITRATE [Suspect]
     Active Substance: ISOSORBIDE MONONITRATE
     Indication: Hereditary alpha tryptasaemia
  12. PREDNISONE [Suspect]
     Active Substance: PREDNISONE
     Indication: Prinzmetal angina
     Dosage: UNK
     Route: 065
  13. PREDNISONE [Suspect]
     Active Substance: PREDNISONE
     Indication: Hereditary alpha tryptasaemia
  14. BOSENTAN [Suspect]
     Active Substance: BOSENTAN
     Indication: Prinzmetal angina
     Dosage: UNK
     Route: 065
  15. BOSENTAN [Suspect]
     Active Substance: BOSENTAN
     Indication: Hereditary alpha tryptasaemia

REACTIONS (3)
  - Mast cell activation syndrome [Unknown]
  - Hypersensitivity [Unknown]
  - Coronary artery disease [Unknown]
